FAERS Safety Report 16117404 (Version 7)
Quarter: 2019Q3

REPORT INFORMATION
  Report Type: Spontaneous
  Country: US (occurrence: US)
  Receive Date: 20190326
  Receipt Date: 20190820
  Transmission Date: 20191004
  Serious: Yes (Other)
  Sender: FDA-Public Use
  Company Number: US-PFIZER INC-2019124471

PATIENT
  Age: 60 Year
  Sex: Female

DRUGS (14)
  1. PRISTIQ EXTENDED-RELEASE [Suspect]
     Active Substance: DESVENLAFAXINE SUCCINATE
     Indication: DEPRESSION
     Dosage: 100 MG, UNK
  2. XANAX [Suspect]
     Active Substance: ALPRAZOLAM
     Indication: MUSCLE SPASMS
  3. PRISTIQ EXTENDED-RELEASE [Suspect]
     Active Substance: DESVENLAFAXINE SUCCINATE
     Indication: ANXIETY
  4. XANAX [Suspect]
     Active Substance: ALPRAZOLAM
     Indication: FEELING OF RELAXATION
  5. XANAX [Suspect]
     Active Substance: ALPRAZOLAM
     Indication: PAIN
  6. XANAX [Suspect]
     Active Substance: ALPRAZOLAM
     Indication: FIBROMYALGIA
  7. PRISTIQ EXTENDED-RELEASE [Suspect]
     Active Substance: DESVENLAFAXINE SUCCINATE
     Indication: EXOSTOSIS
  8. XANAX [Suspect]
     Active Substance: ALPRAZOLAM
     Indication: PAIN
     Dosage: 1 MG, 3X/DAY AS NEEDED
     Route: 048
     Dates: start: 2009
  9. PRISTIQ EXTENDED-RELEASE [Suspect]
     Active Substance: DESVENLAFAXINE SUCCINATE
     Indication: MUSCLE SPASMS
  10. XANAX [Suspect]
     Active Substance: ALPRAZOLAM
     Indication: ANXIETY
  11. XANAX [Suspect]
     Active Substance: ALPRAZOLAM
     Indication: PANIC ATTACK
  12. XANAX [Suspect]
     Active Substance: ALPRAZOLAM
     Indication: DEPRESSION
  13. XANAX [Suspect]
     Active Substance: ALPRAZOLAM
     Indication: EXOSTOSIS
  14. PRISTIQ EXTENDED-RELEASE [Suspect]
     Active Substance: DESVENLAFAXINE SUCCINATE
     Indication: PANIC ATTACK

REACTIONS (7)
  - Malaise [Unknown]
  - Back disorder [Unknown]
  - Suicidal ideation [Unknown]
  - Mobility decreased [Unknown]
  - Gait disturbance [Unknown]
  - Neck pain [Unknown]
  - Back pain [Unknown]
